FAERS Safety Report 4992763-1 (Version None)
Quarter: 2006Q2

REPORT INFORMATION
  Report Type: 
  Country: None (occurrence: None)
  Receive Date: 20060504
  Receipt Date: 20060424
  Transmission Date: 20061013
  Serious: Yes (Death)
  Sender: FDA-Public Use
  Company Number: US-ABBOTT-06P-163-0331410-00

PATIENT
  Sex: Male
  Weight: 54.48 kg

DRUGS (3)
  1. BIAXIN [Suspect]
     Indication: LUNG INFECTION
     Route: 048
     Dates: start: 20030101, end: 20060413
  2. ETHAMBUTOL [Concomitant]
     Indication: LUNG INFECTION
     Route: 048
     Dates: end: 20060413
  3. RIFAMPICIN [Concomitant]
     Indication: LUNG INFECTION
     Route: 048
     Dates: end: 20060413

REACTIONS (1)
  - LUNG INFECTION [None]
